FAERS Safety Report 4921270-7 (Version None)
Quarter: 2006Q1

REPORT INFORMATION
  Report Type: 
  Country: None (occurrence: None)
  Receive Date: 20060222
  Receipt Date: 20060222
  Transmission Date: 20060701
  Serious: Yes (Hospitalization)
  Sender: FDA-Public Use
  Company Number: None

PATIENT
  Age: 72 Year
  Sex: Male
  Weight: 99.7913 kg

DRUGS (3)
  1. COUMADIN [Suspect]
  2. HEPARIN [Suspect]
  3. WARFARIN SODIUM [Suspect]

REACTIONS (3)
  - CONJUNCTIVITIS [None]
  - INTERCEPTED MEDICATION ERROR [None]
  - NOSOCOMIAL INFECTION [None]
